FAERS Safety Report 26110546 (Version 4)
Quarter: 2025Q4

REPORT INFORMATION
  Report Type: Spontaneous
  Country: US (occurrence: US)
  Receive Date: 20251202
  Receipt Date: 20251231
  Transmission Date: 20260117
  Serious: No
  Sender: TOLMAR
  Company Number: US-Tolmar-TLM-2025-08887

PATIENT

DRUGS (2)
  1. FENSOLVI [Suspect]
     Active Substance: LEUPROLIDE ACETATE
     Indication: Precocious puberty
     Dosage: BOX: 15309CUF EXP: 09-2026?SYRINGE A: 15309AUF EXP: 10-2026?SYRINGE B: 15309BUF EXP: 09-2026?NDC: 62
  2. DEVICE [Suspect]
     Active Substance: DEVICE
     Indication: Precocious puberty
     Dosage: BOX: 15309CUF EXP: 09-2026?SYRINGE A: 15309AUF EXP: 10-2026?SYRINGE B: 15309BUF EXP: 09-2026?NDC: 62

REACTIONS (5)
  - Intercepted product preparation error [Unknown]
  - Wrong technique in product usage process [Unknown]
  - Device leakage [Unknown]
  - Device occlusion [Unknown]
  - Product quality issue [Unknown]
